FAERS Safety Report 7070115-0 (Version None)
Quarter: 2010Q4

REPORT INFORMATION
  Report Type: 
  Country: None (occurrence: None)
  Receive Date: 20101028
  Receipt Date: 20101013
  Transmission Date: 20110411
  Serious: No
  Sender: FDA-Public Use
  Company Number: US-WYE-H17348210

PATIENT
  Age: 50 Year
  Sex: Female
  Weight: 72.64 kg

DRUGS (1)
  1. ADVIL [Suspect]
     Indication: HEADACHE
     Dosage: 2 LIQUI-GELS AS NEEDED
     Route: 048
     Dates: start: 20100829, end: 20100831

REACTIONS (1)
  - DRUG EFFECT DECREASED [None]
